FAERS Safety Report 16968915 (Version 3)
Quarter: 2020Q1

REPORT INFORMATION
  Report Type: Spontaneous
  Country: ES (occurrence: ES)
  Receive Date: 20191029
  Receipt Date: 20200116
  Transmission Date: 20200409
  Serious: Yes (Other)
  Sender: FDA-Public Use
  Company Number: ES-TEVA-2019-ES-1128482

PATIENT
  Age: 88 Year
  Sex: Female
  Weight: 83 kg

DRUGS (1)
  1. LEVOFLOXACINO 500 MG 14 COMPRIMIDOS [Suspect]
     Active Substance: LEVOFLOXACIN
     Indication: UPPER RESPIRATORY TRACT INFECTION
     Dosage: 500 MG 1 DAYS
     Route: 048
     Dates: start: 20190127, end: 20190129

REACTIONS (1)
  - Hallucination, visual [Recovering/Resolving]

NARRATIVE: CASE EVENT DATE: 20190128
